FAERS Safety Report 8076389-1 (Version None)
Quarter: 2012Q1

REPORT INFORMATION
  Report Type: 
  Country: None (occurrence: None)
  Receive Date: 20120127
  Receipt Date: 20120127
  Transmission Date: 20120608
  Serious: No
  Sender: FDA-Public Use
  Company Number: None

PATIENT
  Age: 66 Year
  Sex: Female
  Weight: 61.234 kg

DRUGS (1)
  1. ZYRTEC [Suspect]
     Dosage: 1 TABLET
     Dates: start: 20110508, end: 20110925

REACTIONS (2)
  - PRURITUS GENERALISED [None]
  - DRUG WITHDRAWAL SYNDROME [None]
